FAERS Safety Report 16119181 (Version 1)
Quarter: 2019Q1

REPORT INFORMATION
  Report Type: Spontaneous
  Country: US (occurrence: US)
  Receive Date: 20190326
  Receipt Date: 20190326
  Transmission Date: 20190418
  Serious: No
  Sender: FDA-Public Use
  Company Number: US-BAYER-2019-058224

PATIENT
  Sex: Female

DRUGS (2)
  1. TRULANCE [Concomitant]
     Active Substance: PLECANATIDE
  2. MIRALAX [Suspect]
     Active Substance: POLYETHYLENE GLYCOL 3350
     Indication: IRRITABLE BOWEL SYNDROME
     Dosage: 3 MG
     Route: 048
     Dates: start: 2019

REACTIONS (2)
  - Abdominal pain [Unknown]
  - Drug ineffective [None]

NARRATIVE: CASE EVENT DATE: 2019
